FAERS Safety Report 10161768 (Version 1)
Quarter: 2014Q2

REPORT INFORMATION
  Report Type: Spontaneous
  Country: US (occurrence: US)
  Receive Date: 20140509
  Receipt Date: 20140509
  Transmission Date: 20141212
  Serious: No
  Sender: FDA-Public Use
  Company Number: US-ALEXION-A201401743

PATIENT
  Sex: 0

DRUGS (1)
  1. SOLIRIS 300MG [Suspect]
     Indication: PAROXYSMAL NOCTURNAL HAEMOGLOBINURIA
     Dosage: UNK
     Route: 042

REACTIONS (7)
  - Dysphagia [Unknown]
  - Feeling abnormal [Unknown]
  - Odynophagia [Unknown]
  - Fatigue [Unknown]
  - Chest pain [Unknown]
  - Blood lactate dehydrogenase decreased [Not Recovered/Not Resolved]
  - Reticulocyte count increased [Not Recovered/Not Resolved]
